FAERS Safety Report 7979016-4 (Version None)
Quarter: 2011Q4

REPORT INFORMATION
  Report Type: 
  Country: None (occurrence: None)
  Receive Date: 20111129
  Receipt Date: 20110714
  Transmission Date: 20120403
  Serious: Yes (Other)
  Sender: FDA-Public Use
  Company Number: PHHY2011US62834

PATIENT
  Age: 79 Year
  Sex: Female

DRUGS (15)
  1. PROZAC [Suspect]
  2. KLOR-CON [Suspect]
  3. VIMPAT (LACOSAMIDE) SOLUTION [Concomitant]
  4. NAMENDA [Concomitant]
  5. ASPIRIN [Concomitant]
  6. VITAMIN D [Concomitant]
  7. AFINITOR [Suspect]
     Indication: NEUROENDOCRINE TUMOUR
     Dosage: 10 MG, DAILY 10 MG, EVERY ALTERNATE DAY
  8. KEPPRA [Concomitant]
  9. DILANTIN [Concomitant]
  10. SENNA (SENNA, SENNA ALEXANDRINA) [Concomitant]
  11. MUCOLEX (CARBOCISTEINE) [Concomitant]
  12. LORAZEPAM [Concomitant]
  13. METOPROLOL TARTRATE [Concomitant]
  14. CALCIUM CARBONATE [Concomitant]
  15. CENTRUM SILVER (ASCORBIC ACID, CALCIUM, MINERALS NOS, RETINOL, TOCOPHE [Concomitant]

REACTIONS (3)
  - PRURITUS [None]
  - PLATELET COUNT DECREASED [None]
  - INSOMNIA [None]
